FAERS Safety Report 7354302 (Version 2)
Quarter: 2013Q3

REPORT INFORMATION
  Report Type: Spontaneous
  Country: CA (occurrence: None)
  Receive Date: 20100326
  Receipt Date: 20130709
  Transmission Date: 20140515
  Serious: Yes (Hospitalization)
  Sender: FDA-Public Use
  Company Number: AUR-APL-2010-00768

PATIENT
  Age: 7 Year
  Sex: Male

DRUGS (9)
  1. ONDANSETRON (ONDANSETRON) [Suspect]
     Indication: PROPHYLAXIS OF NAUSEA AND VOMITING
     Dosage: 4MG - Q8 HOURS - ORAL
     Route: 048
  2. GRANISETRON [Concomitant]
     Dosage: EVERY 12 HOURS.
     Route: 042
  3. HYDROXYZINE [Concomitant]
  4. DIMENHYDRINATE [Concomitant]
  5. LORAZEPAM [Concomitant]
  6. RANITIDINE HYDROCHLORIDE [Concomitant]
  7. BISACODYL [Concomitant]
  8. DOCUSATE [Concomitant]
  9. CEFUROXIME [Concomitant]

REACTIONS (6)
  - Nervous system disorder [None]
  - Movement disorder [None]
  - Jaw disorder [None]
  - Excessive eye blinking [None]
  - Dyskinesia [None]
  - Trismus [None]
